FAERS Safety Report 21313032 (Version 1)
Quarter: 2022Q3

REPORT INFORMATION
  Report Type: Spontaneous
  Country: None (occurrence: CA)
  Receive Date: 20220909
  Receipt Date: 20220909
  Transmission Date: 20221027
  Serious: Yes (Other)
  Sender: FDA-Public Use
  Company Number: CA-B.Braun Medical Inc.-2132714

PATIENT

DRUGS (28)
  1. POTASSIUM CHLORIDE [Suspect]
     Active Substance: POTASSIUM CHLORIDE
  2. ALENDRONATE SODIUM\CHOLECALCIFEROL [Suspect]
     Active Substance: ALENDRONATE SODIUM\CHOLECALCIFEROL
  3. AMITRIPTYLINE [Suspect]
     Active Substance: AMITRIPTYLINE
  4. ATROVENT HFA [Suspect]
     Active Substance: IPRATROPIUM BROMIDE
  5. BUPROPION [Suspect]
     Active Substance: BUPROPION
  6. CEFUROXIME AXETIL [Suspect]
     Active Substance: CEFUROXIME AXETIL
  7. CELEBREX [Suspect]
     Active Substance: CELECOXIB
  8. CIPROFLOXACIN HYDROCHLORIDE [Suspect]
     Active Substance: CIPROFLOXACIN HYDROCHLORIDE
  9. CLARITHROMYCIN [Suspect]
     Active Substance: CLARITHROMYCIN
  10. CLOPIDOGREL [Suspect]
     Active Substance: CLOPIDOGREL BISULFATE
  11. CYMBALTA [Suspect]
     Active Substance: DULOXETINE HYDROCHLORIDE
  12. FERROUS GLUCONATE [Suspect]
     Active Substance: FERROUS GLUCONATE
  13. FUROSEMIDE [Suspect]
     Active Substance: FUROSEMIDE
  14. GABAPENTIN [Suspect]
     Active Substance: GABAPENTIN
  15. NITROGLYCERIN [Suspect]
     Active Substance: NITROGLYCERIN
  16. UNSPECIFIED INGREDIENT [Suspect]
     Active Substance: UNSPECIFIED INGREDIENT
  17. INDOMETHACIN SODIUM [Suspect]
     Active Substance: INDOMETHACIN SODIUM
  18. KETAMINE [Suspect]
     Active Substance: KETAMINE
  19. MOXIFLOXACIN HYDROCHLORIDE [Suspect]
     Active Substance: MOXIFLOXACIN HYDROCHLORIDE
  20. NAPROXEN SODIUM [Suspect]
     Active Substance: NAPROXEN SODIUM
  21. PERINDOPRIL [Suspect]
     Active Substance: PERINDOPRIL
  22. POTASSIUM CHLORIDE [Suspect]
     Active Substance: POTASSIUM CHLORIDE
  23. PREDNISONE [Suspect]
     Active Substance: PREDNISONE
  24. ALBUTEROL [Suspect]
     Active Substance: ALBUTEROL
  25. SENOKOT [Suspect]
     Active Substance: SENNOSIDES
  26. SPIRIVA [Suspect]
     Active Substance: TIOTROPIUM BROMIDE MONOHYDRATE
  27. TYLENOL WITH CODEINE [Suspect]
     Active Substance: ACETAMINOPHEN\CODEINE PHOSPHATE
  28. VIOXX [Suspect]
     Active Substance: ROFECOXIB

REACTIONS (6)
  - Abdominal pain [Unknown]
  - Abdominal pain upper [Unknown]
  - Agitation [Unknown]
  - Anxiety [Unknown]
  - Bronchitis [Unknown]
  - Cystitis [Unknown]
